FAERS Safety Report 7659601-X (Version None)
Quarter: 2011Q3

REPORT INFORMATION
  Report Type: 
  Country: None (occurrence: None)
  Receive Date: 20110805
  Receipt Date: 20110802
  Transmission Date: 20111222
  Serious: Yes (Hospitalization)
  Sender: FDA-Public Use
  Company Number: FR-MERCK-1108FRA00015

PATIENT
  Age: 57 Year
  Sex: Female

DRUGS (7)
  1. JANUVIA [Suspect]
     Indication: TYPE 2 DIABETES MELLITUS
     Route: 048
     Dates: start: 20100125, end: 20110615
  2. PAROXETINE HYDROCHLORIDE [Concomitant]
     Route: 048
     Dates: start: 20100101
  3. PEGINTERFERON ALFA-2A [Concomitant]
     Route: 058
     Dates: start: 20110302
  4. METFORMIN HYDROCHLORIDE [Concomitant]
     Route: 048
     Dates: start: 20100301
  5. RIBAVIRIN [Concomitant]
     Route: 048
     Dates: start: 20110302
  6. ESOMEPRAZOLE MAGNESIUM [Concomitant]
     Route: 048
     Dates: start: 20100101
  7. EPOETIN BETA [Concomitant]
     Route: 058
     Dates: start: 20110330

REACTIONS (3)
  - LIPASE INCREASED [None]
  - ABDOMINAL PAIN [None]
  - PANCREATITIS ACUTE [None]
